FAERS Safety Report 4496868-3 (Version None)
Quarter: 2004Q4

REPORT INFORMATION
  Report Type: 
  Country: None (occurrence: None)
  Receive Date: 20041109
  Receipt Date: 20041015
  Transmission Date: 20050328
  Serious: Yes (Hospitalization)
  Sender: FDA-Public Use
  Company Number: DE-GLAXOSMITHKLINE-D0044946A

PATIENT
  Age: 38 Year
  Sex: Female
  Weight: 70 kg

DRUGS (2)
  1. ZYBAN [Suspect]
     Dosage: 20TAB SINGLE DOSE
     Route: 048
  2. ALCOHOL [Concomitant]
     Route: 048
     Dates: start: 20041015, end: 20041015

REACTIONS (5)
  - BLOOD ALCOHOL INCREASED [None]
  - CONVULSION [None]
  - INTENTIONAL OVERDOSE [None]
  - SOMNOLENCE [None]
  - SUICIDE ATTEMPT [None]
